FAERS Safety Report 12393135 (Version 1)
Quarter: 2016Q2

REPORT INFORMATION
  Report Type: Spontaneous
  Country: US (occurrence: None)
  Receive Date: 20160520
  Receipt Date: 20160520
  Transmission Date: 20160815
  Serious: Yes (Hospitalization)
  Sender: FDA-Public Use
  Company Number: None

PATIENT
  Age: 62 Year
  Sex: Male

DRUGS (20)
  1. REQUIP [Concomitant]
     Active Substance: ROPINIROLE HYDROCHLORIDE
  2. WAL-SOM [Concomitant]
     Active Substance: DIPHENHYDRAMINE HYDROCHLORIDE
  3. SINEMET [Concomitant]
     Active Substance: CARBIDOPA\LEVODOPA
  4. TASIGNA [Suspect]
     Active Substance: NILOTINIB
     Indication: CHRONIC MYELOID LEUKAEMIA
     Route: 048
     Dates: start: 20101105
  5. CLONAZEPAM. [Concomitant]
     Active Substance: CLONAZEPAM
  6. CLARITIN [Concomitant]
     Active Substance: LORATADINE
  7. GLEEVEC [Concomitant]
     Active Substance: IMATINIB MESYLATE
  8. AFRIN [Concomitant]
     Active Substance: OXYMETAZOLINE
  9. CLOBETASOL [Concomitant]
     Active Substance: CLOBETASOL
  10. GENTEAL MILD [Concomitant]
     Active Substance: HYPROMELLOSE 2910 (4000 MPA.S)
  11. LIPITOR [Concomitant]
     Active Substance: ATORVASTATIN CALCIUM
  12. NORVASC [Concomitant]
     Active Substance: AMLODIPINE BESYLATE
  13. DOXYCYCLINE. [Concomitant]
     Active Substance: DOXYCYCLINE
  14. AVELOX [Concomitant]
     Active Substance: MOXIFLOXACIN HYDROCHLORIDE
  15. CHERATUSSIN AC [Concomitant]
     Active Substance: CODEINE PHOSPHATE\GUAIFENESIN
  16. TESTOSTERONE. [Concomitant]
     Active Substance: TESTOSTERONE
  17. ASPIRIN. [Concomitant]
     Active Substance: ASPIRIN
  18. SIMVASTATIN. [Concomitant]
     Active Substance: SIMVASTATIN
  19. VIAGRA [Concomitant]
     Active Substance: SILDENAFIL CITRATE
  20. CIPROFLOXACIN. [Concomitant]
     Active Substance: CIPROFLOXACIN

REACTIONS (1)
  - Pneumonia [None]

NARRATIVE: CASE EVENT DATE: 20160510
